FAERS Safety Report 8054090-8 (Version None)
Quarter: 2012Q1

REPORT INFORMATION
  Report Type: 
  Country: None (occurrence: None)
  Receive Date: 20120118
  Receipt Date: 20120103
  Transmission Date: 20120608
  Serious: Yes (Hospitalization)
  Sender: FDA-Public Use
  Company Number: PHHY2012DE002404

PATIENT
  Age: 41 Year
  Sex: Male

DRUGS (10)
  1. DOXEPIN [Suspect]
     Dosage: 675 MG, 9 TABLETS
  2. LISINOPRIL [Suspect]
     Dosage: 200 MG,10 TABLETS
  3. VALDOXAN [Suspect]
     Dosage: 250 MG, 10 TABLETS
  4. LEVETIRACETAM [Suspect]
     Dosage: 19 G,19 TABLETS
  5. IBUPROFEN [Suspect]
     Dosage: 16 G, 20 TABLETS
  6. LISINOPRIL [Suspect]
     Dosage: UNK UKN, UNK
  7. VALDOXAN [Suspect]
     Indication: DEPRESSION
     Dosage: UNK UKN, UNK
     Dates: start: 20090101
  8. DOXYCYCLINE [Suspect]
     Dosage: 600 MG, 6 TABLETS
  9. MIRTAZAPINE [Suspect]
     Dosage: 150 MG, 10 TABLETS
  10. IBUPROFEN [Suspect]
     Dosage: UNK UKN, UNK

REACTIONS (4)
  - BODY TEMPERATURE DECREASED [None]
  - MULTIPLE DRUG OVERDOSE INTENTIONAL [None]
  - SUICIDE ATTEMPT [None]
  - SOMNOLENCE [None]
